FAERS Safety Report 6702100-X (Version None)
Quarter: 2010Q2

REPORT INFORMATION
  Report Type: 
  Country: None (occurrence: None)
  Receive Date: 20100429
  Receipt Date: 20100427
  Transmission Date: 20101027
  Serious: Yes (Hospitalization)
  Sender: FDA-Public Use
  Company Number: RU-SANOFI-AVENTIS-2010SA024182

PATIENT
  Age: 15 Year
  Sex: Female

DRUGS (3)
  1. TRENTAL [Suspect]
     Indication: FRACTURED COCCYX
     Route: 048
     Dates: start: 20100311, end: 20100312
  2. BERODUAL [Concomitant]
     Route: 055
  3. AERIUS [Concomitant]
     Route: 048

REACTIONS (1)
  - ANGIOEDEMA [None]
